FAERS Safety Report 23576637 (Version 1)
Quarter: 2024Q1

REPORT INFORMATION
  Report Type: Spontaneous
  Country: US (occurrence: None)
  Receive Date: 20240228
  Receipt Date: 20240228
  Transmission Date: 20240410
  Serious: Yes (Other)
  Sender: FDA-Public Use
  Company Number: None

PATIENT
  Sex: Female

DRUGS (1)
  1. BRENTUXIMAB VEDOTIN [Suspect]
     Active Substance: BRENTUXIMAB VEDOTIN
     Indication: Cutaneous T-cell lymphoma
     Dates: start: 20240104, end: 20240118

REACTIONS (4)
  - Pancytopenia [None]
  - Alopecia [None]
  - Rash [None]
  - Skin infection [None]

NARRATIVE: CASE EVENT DATE: 20240118
